FAERS Safety Report 5902093-9 (Version None)
Quarter: 2008Q3

REPORT INFORMATION
  Report Type: 
  Country: None (occurrence: None)
  Receive Date: 20080929
  Receipt Date: 20080918
  Transmission Date: 20090109
  Serious: Yes (Other)
  Sender: FDA-Public Use
  Company Number: GB-PFIZER INC-2008074545

PATIENT
  Sex: Female
  Weight: 67 kg

DRUGS (3)
  1. DEPO-PROVERA SUSPENSION/INJ [Suspect]
     Indication: CONTRACEPTION
     Route: 030
     Dates: start: 20080205, end: 20080205
  2. DEPO-PROVERA SUSPENSION/INJ [Suspect]
     Route: 030
     Dates: start: 20080429, end: 20080429
  3. DEPO-PROVERA SUSPENSION/INJ [Suspect]
     Route: 030
     Dates: start: 20080709, end: 20080709

REACTIONS (5)
  - ERYTHEMA [None]
  - EYE DISCHARGE [None]
  - EYE PRURITUS [None]
  - OCULAR HYPERAEMIA [None]
  - SWELLING FACE [None]
